FAERS Safety Report 9938103 (Version 1)
Quarter: 2014Q1

REPORT INFORMATION
  Report Type: Spontaneous
  Country: DE (occurrence: DE)
  Receive Date: 20140303
  Receipt Date: 20140303
  Transmission Date: 20141002
  Serious: Yes (Other)
  Sender: FDA-Public Use
  Company Number: DE-JNJFOC-20140212025

PATIENT
  Age: 15 Year
  Sex: Female
  Weight: 58 kg

DRUGS (3)
  1. RISPERDAL [Suspect]
     Indication: PRODUCT USED FOR UNKNOWN INDICATION
     Dosage: 0.5 MG X 10 (TOTAL 5 MG)
     Route: 048
     Dates: start: 20140219, end: 20140219
  2. NOVALGIN [Suspect]
     Indication: PRODUCT USED FOR UNKNOWN INDICATION
     Dosage: 500 MG X10 (TOTAL 5000 MG)
     Route: 048
     Dates: start: 20140219, end: 20140219
  3. IBUPROFEN [Suspect]
     Indication: PRODUCT USED FOR UNKNOWN INDICATION
     Dosage: 400 MG X 15 (6000 MG)
     Route: 048
     Dates: start: 20140219, end: 20140219

REACTIONS (3)
  - Suicide attempt [Unknown]
  - Intentional overdose [Unknown]
  - Fatigue [Unknown]
